FAERS Safety Report 13533436 (Version 2)
Quarter: 2017Q2

REPORT INFORMATION
  Report Type: Spontaneous
  Country: US (occurrence: US)
  Receive Date: 20170510
  Receipt Date: 20170606
  Transmission Date: 20170830
  Serious: Yes (Disabling, Other)
  Sender: FDA-Public Use
  Company Number: US-ACTELION-A-NJ2017-153642

PATIENT
  Age: 67 Year
  Sex: Female

DRUGS (9)
  1. ASPIRIN. [Concomitant]
     Active Substance: ASPIRIN
  2. DILTIAZEM CD [Concomitant]
     Active Substance: DILTIAZEM
  3. COREG [Concomitant]
     Active Substance: CARVEDILOL
  4. ATORVASTATIN [Concomitant]
     Active Substance: ATORVASTATIN
  5. METFORMIN [Concomitant]
     Active Substance: METFORMIN HYDROCHLORIDE
  6. RANITIDINE. [Concomitant]
     Active Substance: RANITIDINE
  7. ALBUTEROL. [Concomitant]
     Active Substance: ALBUTEROL
  8. OPSUMIT [Suspect]
     Active Substance: MACITENTAN
     Indication: PULMONARY ARTERIAL HYPERTENSION
     Dosage: 10 MG, QD
     Route: 048
     Dates: start: 20170427
  9. ELIQUIS [Concomitant]
     Active Substance: APIXABAN

REACTIONS (2)
  - Dyspnoea [Unknown]
  - Oxygen saturation decreased [Not Recovered/Not Resolved]

NARRATIVE: CASE EVENT DATE: 20170503
